FAERS Safety Report 13874343 (Version 1)
Quarter: 2017Q3

REPORT INFORMATION
  Report Type: Spontaneous
  Country: US (occurrence: US)
  Receive Date: 20170816
  Receipt Date: 20170816
  Transmission Date: 20171127
  Serious: No
  Sender: FDA-Public Use
  Company Number: US-ROCHE-1067132

PATIENT
  Sex: Female

DRUGS (2)
  1. LUCENTIS [Suspect]
     Active Substance: RANIBIZUMAB
     Indication: MACULAR DEGENERATION
     Route: 065
  2. TDAP VACCINE [Suspect]
     Active Substance: DIPHTHERIA AND TETANUS TOXOIDS AND PERTUSSIS VACCINE
     Indication: PROPHYLAXIS
     Route: 065
     Dates: start: 20120413

REACTIONS (7)
  - Thyroid function test abnormal [Unknown]
  - Dizziness [Unknown]
  - Lymphadenopathy [Unknown]
  - Asthenia [Unknown]
  - Rash [Unknown]
  - Platelet count decreased [Unknown]
  - Dysphonia [Unknown]
